FAERS Safety Report 6753165-0 (Version None)
Quarter: 2010Q2

REPORT INFORMATION
  Report Type: 
  Country: None (occurrence: None)
  Receive Date: 20100603
  Receipt Date: 20100514
  Transmission Date: 20101027
  Serious: Yes (Death, Life-Threatening, Hospitalization)
  Sender: FDA-Public Use
  Company Number: DE-CELGENEUS-062-50794-09070006

PATIENT
  Age: 58 Year
  Sex: Male
  Weight: 101 kg

DRUGS (2)
  1. VIDAZA [Suspect]
     Route: 058
     Dates: start: 20090512, end: 20090612
  2. VIDAZA [Suspect]

REACTIONS (3)
  - APPENDICITIS [None]
  - MULTI-ORGAN FAILURE [None]
  - SEPSIS [None]
